FAERS Safety Report 8320109-X (Version None)
Quarter: 2012Q2

REPORT INFORMATION
  Report Type: 
  Country: None (occurrence: None)
  Receive Date: 20120430
  Receipt Date: 20120423
  Transmission Date: 20120825
  Serious: Yes (Life-Threatening, Hospitalization)
  Sender: FDA-Public Use
  Company Number: GR-AMGEN-GRCSP2012025687

PATIENT
  Age: 75 Year
  Sex: Female

DRUGS (2)
  1. CALCIUM [Concomitant]
  2. PROLIA [Suspect]
     Indication: OSTEOPOROSIS
     Dosage: 60 MG, UNK
     Dates: start: 20120201, end: 20120201

REACTIONS (8)
  - SKIN EXFOLIATION [None]
  - BONE PAIN [None]
  - SKIN DISORDER [None]
  - PAIN [None]
  - STOMATITIS [None]
  - RESPIRATORY FAILURE [None]
  - DERMATITIS [None]
  - HYPOCALCAEMIA [None]
